FAERS Safety Report 10284372 (Version 1)
Quarter: 2014Q3

REPORT INFORMATION
  Report Type: Spontaneous
  Country: JP (occurrence: None)
  Receive Date: 20140703
  Receipt Date: 20140703
  Transmission Date: 20150326
  Serious: Yes (Hospitalization)
  Sender: FDA-Public Use
  Company Number: B1004843A

PATIENT
  Age: 33 Year
  Sex: Female

DRUGS (6)
  1. PAROXETINE HYDROCHLORIDE TABLET-CONTROLLED RELEASE (PAROXETINE HYDROCHLORIDE) [Suspect]
     Active Substance: PAROXETINE HYDROCHLORIDE
     Indication: AGORAPHOBIA
     Dosage: 12.5 MG/PER DAY
     Route: 048
     Dates: start: 20140519, end: 20140530
  2. LAMOTRIGINE TABLET (LAMOTRIGINE) [Suspect]
     Active Substance: LAMOTRIGINE
     Indication: PROPHYLAXIS
     Dosage: 24MG/PER DAY
     Route: 048
     Dates: start: 20140519, end: 20140523
  3. MOSAPRIDE CITRATE [Concomitant]
     Active Substance: MOSAPRIDE CITRATE
  4. LAMOTRIGINE TABLET (LAMOTRIGINE) [Suspect]
     Active Substance: LAMOTRIGINE
     Indication: PROPHYLAXIS
     Dosage: 50 MG/PER DAY
     Route: 048
     Dates: start: 20140524, end: 20140530
  5. ALPRAZOLAM. [Concomitant]
     Active Substance: ALPRAZOLAM
  6. CONJUGATED ESTROGENS TABLET (CONJUGATED ESTROGENS) [Suspect]
     Active Substance: ESTROGENS, CONJUGATED
     Indication: PREMENSTRUAL DYSPHORIC DISORDER
     Route: 048
     Dates: start: 20140524, end: 20140530

REACTIONS (3)
  - Pyrexia [None]
  - Rash generalised [None]
  - Hypersensitivity [None]

NARRATIVE: CASE EVENT DATE: 20140530
